FAERS Safety Report 10273716 (Version 1)
Quarter: 2014Q2

REPORT INFORMATION
  Report Type: Spontaneous
  Country: US (occurrence: None)
  Receive Date: 20140630
  Receipt Date: 20140630
  Transmission Date: 20141212
  Serious: Yes (Life-Threatening)
  Sender: FDA-Public Use
  Company Number: None

PATIENT
  Age: 83 Year
  Sex: Female
  Weight: 57 kg

DRUGS (5)
  1. ALTEPLASE [Suspect]
     Indication: ISCHAEMIC STROKE
     Route: 042
     Dates: start: 20140615
  2. EPINEPHRINE [Concomitant]
  3. DIPHENHYDRAMINE [Concomitant]
  4. METHYLPREDNISOLONE [Concomitant]
  5. ENALAPRIL [Suspect]

REACTIONS (1)
  - Angioedema [None]
